FAERS Safety Report 7510230-8 (Version None)
Quarter: 2011Q2

REPORT INFORMATION
  Report Type: 
  Country: None (occurrence: None)
  Receive Date: 20110527
  Receipt Date: 20110518
  Transmission Date: 20111010
  Serious: Yes (Hospitalization)
  Sender: FDA-Public Use
  Company Number: PHHY2011GB42175

PATIENT

DRUGS (7)
  1. DIHYDROCODEINE BITARTRATE INJ [Concomitant]
  2. NITROGLYCERIN [Concomitant]
  3. BISOPROLOL FUMARATE [Concomitant]
  4. WARFARIN SODIUM [Suspect]
     Indication: MITRAL VALVE REPAIR
     Route: 048
  5. ACETAMINOPHEN [Concomitant]
  6. BENDROFLUMETHIAZIDE [Concomitant]
  7. QUININE SULFATE [Concomitant]

REACTIONS (4)
  - BENIGN PROSTATIC HYPERPLASIA [None]
  - MICTURITION URGENCY [None]
  - HAEMATURIA [None]
  - RENAL CYST [None]
